FAERS Safety Report 5254426-7 (Version None)
Quarter: 2007Q1

REPORT INFORMATION
  Report Type: 
  Country: None (occurrence: None)
  Receive Date: 20070302
  Receipt Date: 20070221
  Transmission Date: 20070707
  Serious: Yes (Other)
  Sender: FDA-Public Use
  Company Number: SE-SHR-SE-2006-028175

PATIENT
  Sex: Female

DRUGS (2)
  1. BETASERON [Suspect]
     Indication: PROGRESSIVE MULTIPLE SCLEROSIS
     Dosage: 250 A?G, E.O.D
     Dates: start: 20060101
  2. IUD NOS [Concomitant]

REACTIONS (4)
  - CONJUNCTIVITIS [None]
  - MEMORY IMPAIRMENT [None]
  - MENORRHAGIA [None]
  - SLEEP DISORDER [None]
